FAERS Safety Report 15682325 (Version 3)
Quarter: 2019Q1

REPORT INFORMATION
  Report Type: Report from Study
  Country: US (occurrence: US)
  Receive Date: 20181203
  Receipt Date: 20190118
  Transmission Date: 20190417
  Serious: Yes (Other)
  Sender: FDA-Public Use
  Company Number: US-VERTEX PHARMACEUTICALS-2018-008827

PATIENT
  Age: 8 Year
  Sex: Male
  Weight: 28 kg

DRUGS (12)
  1. VX-659 [Suspect]
     Active Substance: INVESTIGATIONAL PRODUCT
     Indication: CYSTIC FIBROSIS
     Dosage: 120MG/50MG/75MG QD AM, +75MG IVA QD PM
     Route: 048
     Dates: start: 20181112, end: 20181123
  2. FLOVENT [Concomitant]
     Active Substance: FLUTICASONE PROPIONATE
     Indication: CYSTIC FIBROSIS LUNG
     Dosage: 2 PUFFS, BID
     Route: 055
     Dates: start: 20180620
  3. PULMOZYME [Concomitant]
     Active Substance: DORNASE ALFA
     Indication: CYSTIC FIBROSIS LUNG
     Dosage: 2.5 MILLILITER, QD
     Route: 055
     Dates: start: 20120608
  4. ALBUTEROL                          /00139501/ [Concomitant]
     Active Substance: ALBUTEROL
     Indication: CYSTIC FIBROSIS LUNG
     Dosage: 2 PUFFS OF 108 MCG BID
     Route: 055
     Dates: start: 20130715
  5. CREON [Concomitant]
     Active Substance: PANCRELIPASE AMYLASE\PANCRELIPASE LIPASE\PANCRELIPASE PROTEASE
     Indication: CYSTIC FIBROSIS GASTROINTESTINAL DISEASE
     Dosage: 5 CAPS WITH MEALS, 3-4 WITH SNACKS
     Route: 048
     Dates: start: 20180307
  6. HYPERTONIC SALINE SOLUTION [Concomitant]
     Active Substance: SODIUM CHLORIDE
     Indication: CYSTIC FIBROSIS LUNG
     Dosage: 4 MILLILITER, BID
     Route: 055
     Dates: start: 20170606
  7. POLYETHYLENE GLYCOL [Concomitant]
     Active Substance: POLYETHYLENE GLYCOLS
     Indication: CYSTIC FIBROSIS GASTROINTESTINAL DISEASE
     Dosage: 1/2 - 1 CAP QD PRN
     Route: 048
     Dates: start: 20160826
  8. AZITHROMYCIN ANHYDROUS. [Concomitant]
     Active Substance: AZITHROMYCIN ANHYDROUS
     Indication: CYSTIC FIBROSIS LUNG
     Dosage: 250 MG EVERY MON, WED, FRI
     Route: 048
     Dates: start: 20151113
  9. PREVACID [Concomitant]
     Active Substance: LANSOPRAZOLE
     Indication: CYSTIC FIBROSIS GASTROINTESTINAL DISEASE
     Dosage: 15 MG, QD
     Route: 048
     Dates: start: 20130603
  10. VITAMIN D                          /00107901/ [Concomitant]
     Active Substance: ERGOCALCIFEROL
     Indication: CYSTIC FIBROSIS LUNG
     Dosage: 1000 INTERNATIONAL UNIT, QD
     Dates: start: 20161130
  11. VX-661/VX-770 [Suspect]
     Active Substance: IVACAFTOR\TEZACAFTOR
     Indication: CYSTIC FIBROSIS
     Dosage: UNK
     Route: 048
     Dates: start: 20181112, end: 20181123
  12. MULTI COMPLETE [Concomitant]
     Indication: CYSTIC FIBROSIS LUNG
     Dosage: 1 CAP, QD
     Route: 048
     Dates: start: 20170606

REACTIONS (1)
  - Rash [Recovered/Resolved]

NARRATIVE: CASE EVENT DATE: 20181123
